FAERS Safety Report 14609266 (Version 1)
Quarter: 2018Q1

REPORT INFORMATION
  Report Type: Report from Study
  Country: JP (occurrence: JP)
  Receive Date: 20180307
  Receipt Date: 20180307
  Transmission Date: 20180509
  Serious: Yes (Other)
  Sender: FDA-Public Use
  Company Number: JP-GILEAD-2017-0310465

PATIENT

DRUGS (1)
  1. LEDIPASVIR/SOFOSBUVIR [Suspect]
     Active Substance: LEDIPASVIR\SOFOSBUVIR
     Indication: HEPATITIS C
     Dosage: UNK
     Route: 065

REACTIONS (8)
  - Blood uric acid increased [Unknown]
  - Conjunctival hyperaemia [Unknown]
  - Lip swelling [Unknown]
  - Loss of consciousness [Unknown]
  - Ammonia increased [Unknown]
  - No adverse event [Unknown]
  - Infection [Unknown]
  - Transaminases increased [Unknown]
